APPROVED DRUG PRODUCT: MYCOBUTIN
Active Ingredient: RIFABUTIN
Strength: 150MG
Dosage Form/Route: CAPSULE;ORAL
Application: N050689 | Product #001 | TE Code: AB
Applicant: PFIZER INC
Approved: Dec 23, 1992 | RLD: Yes | RS: Yes | Type: RX